FAERS Safety Report 24134732 (Version 2)
Quarter: 2024Q3

REPORT INFORMATION
  Report Type: Spontaneous
  Country: BR (occurrence: BR)
  Receive Date: 20240725
  Receipt Date: 20240801
  Transmission Date: 20241017
  Serious: Yes (Disabling, Other)
  Sender: CELLTRION
  Company Number: BR-CELLTRION INC.-2024BR017643

PATIENT

DRUGS (2)
  1. INFLIXIMAB [Suspect]
     Active Substance: INFLIXIMAB
     Indication: Ankylosing spondylitis
     Dosage: 5 AMPOULES EVERY 2 MONTHS
     Route: 042
     Dates: start: 20240122
  2. METHOTREXATE [Concomitant]
     Active Substance: METHOTREXATE
     Indication: Ankylosing spondylitis
     Dosage: 2.5 MG / 8 PILLS A DAY (WAS 5 PILLS A DAY) (START DATE: MORE THAN 2 YEARS AGO)
     Route: 048

REACTIONS (5)
  - Ankylosing spondylitis [Recovering/Resolving]
  - Toothache [Recovering/Resolving]
  - Dengue fever [Recovering/Resolving]
  - Tooth infection [Recovering/Resolving]
  - Intentional dose omission [Recovering/Resolving]

NARRATIVE: CASE EVENT DATE: 20240501
